FAERS Safety Report 18301148 (Version 2)
Quarter: 2020Q3

REPORT INFORMATION
  Report Type: Spontaneous
  Country: BR (occurrence: BR)
  Receive Date: 20200923
  Receipt Date: 20200924
  Transmission Date: 20201103
  Serious: Yes (Death, Hospitalization)
  Sender: FDA-Public Use
  Company Number: BR-TEVA-2020-BR-1831849

PATIENT
  Age: 43 Year
  Sex: Male
  Weight: 82.6 kg

DRUGS (10)
  1. FLUOROURACIL. [Suspect]
     Active Substance: FLUOROURACIL
     Dosage: 5000 MG, ENDOVENOUS (DOSE INFUSER), USED ON 04?AUG?2020
     Route: 042
     Dates: start: 201912
  2. CALCIUM FOLINATE [Concomitant]
     Active Substance: LEUCOVORIN CALCIUM
     Dosage: 400 MG, LAST DOSE ON 04?AUG?2020
     Route: 042
  3. OMEPRAZOLE. [Concomitant]
     Active Substance: OMEPRAZOLE
     Dosage: 40MG, LAST DOSE ON 04?AUG?2020
     Route: 042
  4. OXALIPLATIN. [Suspect]
     Active Substance: OXALIPLATIN
     Dosage: 160 MG, USED ON 04?AUG?2020
     Route: 042
     Dates: start: 201912
  5. LONQUEX 10MG/ML ? 0.6ML FILLED SYRINGE [Suspect]
     Active Substance: LIPEGFILGRASTIM
     Dosage: LAST DOSE (6 MG) ON 05?AUG?2020
     Route: 058
     Dates: start: 201912
  6. DEXAMETHASONE. [Concomitant]
     Active Substance: DEXAMETHASONE
     Dosage: 20MG, LAST DOSE ON 04?AUG?2020;
     Route: 042
  7. DIPHENHYDRAMINE. [Concomitant]
     Active Substance: DIPHENHYDRAMINE
     Dosage: 50 MG, LAST DOSE ON 04?AUG?2020
     Route: 042
  8. DOCETAXEL. [Suspect]
     Active Substance: DOCETAXEL
     Dosage: 100 MG, USED ON 04?AUG?2020
     Route: 042
     Dates: start: 201912
  9. ONICIT [Concomitant]
     Active Substance: PALONOSETRON HYDROCHLORIDE
     Dosage: 0.25 MG LAST DOSE ON 04?AUG?2020
     Route: 042
  10. ONDANSETRON [Concomitant]
     Active Substance: ONDANSETRON
     Dosage: 8MG, LAST DOSE ON 05?AUG?2020
     Route: 042

REACTIONS (9)
  - Sarcopenia [Fatal]
  - Blood test abnormal [Unknown]
  - Pulmonary mass [Unknown]
  - Mucosal inflammation [Unknown]
  - Oxygen saturation decreased [Unknown]
  - Cough [Unknown]
  - Septic shock [Fatal]
  - Pleural effusion [Fatal]
  - Lung disorder [Unknown]

NARRATIVE: CASE EVENT DATE: 202008
